FAERS Safety Report 11151281 (Version 2)
Quarter: 2015Q2

REPORT INFORMATION
  Report Type: Spontaneous
  Country: SK (occurrence: SK)
  Receive Date: 20150601
  Receipt Date: 20150617
  Transmission Date: 20150821
  Serious: Yes (Hospitalization)
  Sender: FDA-Public Use
  Company Number: SK-TEVA-566554ISR

PATIENT
  Age: 60 Year

DRUGS (6)
  1. EQUORAL [Suspect]
     Active Substance: CYCLOSPORINE
     Dosage: 400 MILLIGRAM DAILY;
     Route: 048
     Dates: start: 201409
  2. PREDNISON [Concomitant]
     Active Substance: PREDNISONE
     Dosage: 2.5 MILLIGRAM DAILY;
     Dates: start: 201504
  3. HERPESIN [Concomitant]
     Dosage: 400 MILLIGRAM DAILY;
     Route: 048
  4. PREDNISON [Concomitant]
     Active Substance: PREDNISONE
     Dates: start: 201407
  5. EQUORAL [Suspect]
     Active Substance: CYCLOSPORINE
     Dosage: 125 MILLIGRAM DAILY;
     Route: 048
     Dates: start: 201504
  6. EQUORAL [Suspect]
     Active Substance: CYCLOSPORINE
     Route: 048
     Dates: start: 201408, end: 201409

REACTIONS (1)
  - Corneal disorder [Recovered/Resolved]

NARRATIVE: CASE EVENT DATE: 201409
